FAERS Safety Report 17310783 (Version 1)
Quarter: 2020Q1

REPORT INFORMATION
  Report Type: Spontaneous
  Country: US (occurrence: US)
  Receive Date: 20200123
  Receipt Date: 20200123
  Transmission Date: 20200409
  Serious: No
  Sender: FDA-Public Use
  Company Number: US-ROCHE-2227754

PATIENT
  Age: 35 Year
  Sex: Male

DRUGS (6)
  1. PNEUMOCOCCAL POLYSACCHARIDE VACCINE [Concomitant]
     Active Substance: PNEUMOCOCCAL VACCINE POLYVALENT
  2. IMMUNOGLOBULIN [IMMUNOGLOBULINS NOS] [Concomitant]
     Active Substance: IMMUNE GLOBULIN NOS
  3. RITUXIMAB. [Suspect]
     Active Substance: RITUXIMAB
     Indication: INTERSTITIAL LUNG DISEASE
     Route: 065
  4. LORATADINE. [Concomitant]
     Active Substance: LORATADINE
     Route: 065
  5. PREDNISONE. [Suspect]
     Active Substance: PREDNISONE
     Indication: THROMBOCYTOPENIA
     Route: 048
  6. AZATHIOPRINE. [Suspect]
     Active Substance: AZATHIOPRINE
     Indication: INTERSTITIAL LUNG DISEASE
     Route: 048

REACTIONS (1)
  - Sinusitis [Unknown]
